FAERS Safety Report 6434255-9 (Version None)
Quarter: 2009Q4

REPORT INFORMATION
  Report Type: 
  Country: None (occurrence: None)
  Receive Date: 20091110
  Receipt Date: 20090421
  Transmission Date: 20100525
  Serious: No
  Sender: FDA-Public Use
  Company Number: US-ASTRAZENECA-2009SE08911

PATIENT
  Sex: Male

DRUGS (5)
  1. PRILOSEC OTC [Suspect]
     Dosage: 1 TABLET, 1 /DAY
     Route: 048
  2. PRILOSEC RX [Suspect]
     Route: 048
     Dates: start: 19980101
  3. CARDIZEM [Concomitant]
     Dosage: 180 MG, UNK FREQ
     Route: 048
  4. COZAAR [Concomitant]
     Dosage: 50 MG, UNK FREQ
  5. PLAVIX [Concomitant]
     Dosage: UNKNOWN

REACTIONS (2)
  - NEUROPATHY PERIPHERAL [None]
  - PARAESTHESIA [None]
